FAERS Safety Report 13938667 (Version 1)
Quarter: 2017Q3

REPORT INFORMATION
  Report Type: Spontaneous
  Country: US (occurrence: None)
  Receive Date: 20170905
  Receipt Date: 20170905
  Transmission Date: 20171127
  Serious: Yes (Hospitalization)
  Sender: FDA-Public Use
  Company Number: None

PATIENT
  Age: 75 Year
  Sex: Male

DRUGS (9)
  1. CLOPIDOGREL [Concomitant]
     Active Substance: CLOPIDOGREL BISULFATE
  2. LUPRON [Suspect]
     Active Substance: LEUPROLIDE ACETATE
     Indication: PROSTATE CANCER
     Dosage: 22.5MG Q 3 MONTHS IM
     Route: 030
  3. LISINOPRIL. [Concomitant]
     Active Substance: LISINOPRIL
  4. NOVOLOG [Concomitant]
     Active Substance: INSULIN ASPART
  5. METOPROLOL. [Concomitant]
     Active Substance: METOPROLOL
  6. TAMSULOSIN [Concomitant]
     Active Substance: TAMSULOSIN
  7. ASPIRIN. [Concomitant]
     Active Substance: ASPIRIN
  8. ATORVASTATIN [Concomitant]
     Active Substance: ATORVASTATIN
  9. TRACEVA [Concomitant]

REACTIONS (2)
  - Coronary artery occlusion [None]
  - Myocardial infarction [None]

NARRATIVE: CASE EVENT DATE: 2017
